FAERS Safety Report 6915740-X (Version None)
Quarter: 2010Q3

REPORT INFORMATION
  Report Type: 
  Country: None (occurrence: None)
  Receive Date: 20100810
  Receipt Date: 20100223
  Transmission Date: 20110219
  Serious: No
  Sender: FDA-Public Use
  Company Number: A0845965A

PATIENT
  Sex: Female

DRUGS (3)
  1. PAXIL CR [Suspect]
     Indication: DEPRESSION
     Dosage: 25MG PER DAY
     Route: 048
     Dates: start: 20090101
  2. ATIVAN [Concomitant]
  3. PRILOSEC [Concomitant]

REACTIONS (5)
  - DIZZINESS [None]
  - HEART RATE IRREGULAR [None]
  - HYPERHIDROSIS [None]
  - PALPITATIONS [None]
  - VISION BLURRED [None]
